FAERS Safety Report 18627297 (Version 1)
Quarter: 2020Q4

REPORT INFORMATION
  Report Type: Spontaneous
  Country: US (occurrence: US)
  Receive Date: 20201216
  Receipt Date: 20201216
  Transmission Date: 20210114
  Serious: Yes (Hospitalization)
  Sender: FDA-Public Use
  Company Number: None

PATIENT
  Age: 63 Year
  Sex: Female

DRUGS (6)
  1. NEOMYCIN. [Concomitant]
     Active Substance: NEOMYCIN
  2. CAPECITABINE 500MG TAB [Suspect]
     Active Substance: CAPECITABINE
     Indication: COLON CANCER
     Dosage: ?          OTHER DOSE:3 TABS;?
     Route: 048
     Dates: start: 20200804
  3. METRONIDAZOL [Concomitant]
     Active Substance: METRONIDAZOLE
  4. AMLOD/BENAZPRL CAPSULE 5/10 [Concomitant]
     Active Substance: AMLODIPINE BESYLATE\BENAZEPRIL HYDROCHLORIDE
  5. PANTIOPRAZOLE [Concomitant]
  6. LORAZEPAM. [Concomitant]
     Active Substance: LORAZEPAM

REACTIONS (4)
  - Therapy interrupted [None]
  - Hepatic artery infusion pump insertion [None]
  - Cholecystectomy [None]
  - Colectomy [None]

NARRATIVE: CASE EVENT DATE: 20201114
